FAERS Safety Report 14890256 (Version 3)
Quarter: 2019Q1

REPORT INFORMATION
  Report Type: Spontaneous
  Country: US (occurrence: US)
  Receive Date: 20180514
  Receipt Date: 20190225
  Transmission Date: 20190417
  Serious: No
  Sender: FDA-Public Use
  Company Number: US-PFIZER INC-2018193162

PATIENT
  Age: 75 Year
  Sex: Female
  Weight: 87.75 kg

DRUGS (1)
  1. IBRANCE [Suspect]
     Active Substance: PALBOCICLIB
     Dosage: UNK

REACTIONS (3)
  - Echocardiogram abnormal [Unknown]
  - Food craving [Unknown]
  - Neoplasm progression [Unknown]
